FAERS Safety Report 5524218-X (Version None)
Quarter: 2007Q4

REPORT INFORMATION
  Report Type: 
  Country: None (occurrence: None)
  Receive Date: 20071121
  Receipt Date: 20071109
  Transmission Date: 20080405
  Serious: Yes (Other)
  Sender: FDA-Public Use
  Company Number: US-PFIZER INC-2007087163

PATIENT
  Sex: Male

DRUGS (7)
  1. CHANTIX [Suspect]
     Indication: SMOKING CESSATION THERAPY
  2. PAXIL [Concomitant]
  3. XANAX [Concomitant]
     Indication: ANXIETY
  4. PROMETHAZINE [Concomitant]
  5. LOPERAMIDE HCL [Concomitant]
  6. LORATADINE [Concomitant]
  7. ALBUTEROL [Concomitant]

REACTIONS (3)
  - FEELING ABNORMAL [None]
  - HOMICIDAL IDEATION [None]
  - SUICIDAL IDEATION [None]
